FAERS Safety Report 7753281-0 (Version None)
Quarter: 2011Q3

REPORT INFORMATION
  Report Type: 
  Country: None (occurrence: None)
  Receive Date: 20110915
  Receipt Date: 20110912
  Transmission Date: 20111222
  Serious: Yes (Hospitalization)
  Sender: FDA-Public Use
  Company Number: DE-ROCHE-722339

PATIENT
  Sex: Female
  Weight: 67 kg

DRUGS (5)
  1. TRASTUZUMAB [Suspect]
     Dosage: FORM: VIALS, TOTAL DOSE: 402 MG, LAST DOSE PRIOR TO SAE: 3 AUGUST 2010.
     Route: 042
     Dates: start: 20100803
  2. BEVACIZUMAB [Suspect]
     Dosage: FORM: VIALS, TOTAL DOSE WAS REPORTED AS 1005 MG. DATE OF LAST DOSE PRIOR TO SAE: 03 AUGUST 2010
     Route: 042
     Dates: start: 20100803
  3. METODURA [Concomitant]
     Dosage: DRUG REPORTED AS ^METODURA COMP^
  4. CARBOPLATIN [Suspect]
     Dosage: DOSE REPORTED AS  6 AUC AND TOTAL DOSE AS 810 MG. FORM: VIALS, LAST DOSE PRIOR TO SAE:3 AUGUST 2010
     Route: 042
     Dates: start: 20100803
  5. DOCETAXEL [Suspect]
     Dosage: FORM: VIALS, TOTAL DOSE: 1237 MG.
     Route: 042
     Dates: start: 20100803

REACTIONS (1)
  - PANCYTOPENIA [None]
